FAERS Safety Report 4563929-X (Version None)
Quarter: 2005Q1

REPORT INFORMATION
  Report Type: 
  Country: None (occurrence: None)
  Receive Date: 20050128
  Receipt Date: 20050118
  Transmission Date: 20050727
  Serious: Yes (Other)
  Sender: FDA-Public Use
  Company Number: GB-JNJFOC-20050104873

PATIENT
  Age: 16 Year
  Sex: Male
  Weight: 101.61 kg

DRUGS (5)
  1. CONCERTA [Suspect]
     Indication: ATTENTION DEFICIT/HYPERACTIVITY DISORDER
     Dosage: 2.5 TABLETS OF CONCERTA* PER DAY, ONE IN THE MORNING, ONE AT LUNCH AND A HALF IN THE EVENING
     Route: 065
  2. TEGRATOL [Concomitant]
     Indication: PAIN
     Route: 065
  3. CLOZAPINE [Concomitant]
     Indication: PAIN
     Route: 065
  4. MELATONIN [Concomitant]
     Indication: PAIN
     Route: 065
  5. CODEINE [Concomitant]
     Indication: PAIN
     Route: 065

REACTIONS (3)
  - AGGRESSION [None]
  - HEPATITIS [None]
  - SUICIDAL IDEATION [None]
